FAERS Safety Report 8361135-4 (Version None)
Quarter: 2012Q2

REPORT INFORMATION
  Report Type: 
  Country: None (occurrence: None)
  Receive Date: 20120515
  Receipt Date: 20120430
  Transmission Date: 20120825
  Serious: Yes (Hospitalization)
  Sender: FDA-Public Use
  Company Number: ES-WATSON-2012-07575

PATIENT
  Age: 75 Year
  Sex: Male

DRUGS (1)
  1. BACLOFEN [Suspect]
     Indication: POLYNEUROPATHY
     Dosage: UNK
     Route: 065

REACTIONS (3)
  - TREMOR [None]
  - MIOSIS [None]
  - MYOCLONUS [None]
